FAERS Safety Report 11456562 (Version 1)
Quarter: 2015Q3

REPORT INFORMATION
  Report Type: Report from Study
  Country: US (occurrence: None)
  Receive Date: 20150903
  Receipt Date: 20150903
  Transmission Date: 20151125
  Serious: Yes (Hospitalization, Other)
  Sender: FDA-Public Use
  Company Number: ADR-2015-00392

PATIENT
  Age: 15 Year
  Sex: Female

DRUGS (1)
  1. LIORESAL [Suspect]
     Active Substance: BACLOFEN
     Indication: MUSCLE SPASTICITY
     Dosage: 481.5 MCG/DAY

REACTIONS (5)
  - Drug withdrawal syndrome [None]
  - Muscle spasticity [None]
  - Medical device site scar [None]
  - Underdose [None]
  - Discomfort [None]
